FAERS Safety Report 5798701-6 (Version None)
Quarter: 2008Q3

REPORT INFORMATION
  Report Type: 
  Country: None (occurrence: None)
  Receive Date: 20080702
  Receipt Date: 20080626
  Transmission Date: 20090109
  Serious: Yes (Other)
  Sender: FDA-Public Use
  Company Number: US-JNJFOC-20070905706

PATIENT
  Sex: Female

DRUGS (9)
  1. TOPAMAX [Suspect]
     Indication: HEADACHE
     Route: 048
  2. TOPAMAX [Suspect]
     Indication: CONVULSION
     Route: 048
  3. NEURONTIN [Concomitant]
     Indication: COMPLEX REGIONAL PAIN SYNDROME
     Dosage: 600 MG IN THE AM, 1200 MG IN THE PM
  4. KLONOPIN [Concomitant]
     Indication: ANXIETY
     Dosage: TWICE A DAY/AS NEEDED
  5. LO/OVRAL [Concomitant]
     Indication: HORMONE REPLACEMENT THERAPY
  6. LIPITOR [Concomitant]
     Indication: BLOOD CHOLESTEROL INCREASED
  7. FIORICET [Concomitant]
     Indication: HEADACHE
  8. LEXAPRO [Concomitant]
     Indication: DEPRESSION
  9. TOPROL-XL [Concomitant]
     Indication: TACHYARRHYTHMIA

REACTIONS (4)
  - ALKALOSIS HYPOCHLORAEMIC [None]
  - DEHYDRATION [None]
  - DIZZINESS [None]
  - NAUSEA [None]
